FAERS Safety Report 6285969-5 (Version None)
Quarter: 2009Q3

REPORT INFORMATION
  Report Type: 
  Country: None (occurrence: None)
  Receive Date: 20090728
  Receipt Date: 20090723
  Transmission Date: 20100115
  Serious: Yes (Other)
  Sender: FDA-Public Use
  Company Number: US-JNJFOC-20090605140

PATIENT
  Sex: Female

DRUGS (14)
  1. LEVAQUIN [Suspect]
     Indication: PNEUMONIA
     Dosage: IN WINTER
     Route: 048
  2. ZETIA [Concomitant]
     Route: 065
  3. ENALAPRIL MALEATE [Concomitant]
     Route: 065
  4. GABAPENTIN [Concomitant]
     Route: 065
  5. NEXIUM [Concomitant]
     Route: 065
  6. BUMETANIDE [Concomitant]
     Route: 065
  7. ZYRTEC [Concomitant]
     Route: 065
  8. FLEXERIL [Concomitant]
     Route: 065
  9. ZOLPIDEM [Concomitant]
     Route: 065
  10. ULTRAM [Concomitant]
     Route: 065
  11. VITAMINS NOS [Concomitant]
     Route: 065
  12. POTASSIUM CHLORIDE [Concomitant]
     Route: 065
  13. ASPIRIN [Concomitant]
     Route: 065
  14. HERBAL MEDICATION (NOS) [Concomitant]
     Route: 065

REACTIONS (5)
  - ARTHRALGIA [None]
  - LIGAMENT RUPTURE [None]
  - ROTATOR CUFF SYNDROME [None]
  - TENDON DISORDER [None]
  - TENDON RUPTURE [None]
